FAERS Safety Report 10017827 (Version 2)
Quarter: 2014Q2

REPORT INFORMATION
  Report Type: Spontaneous
  Country: US (occurrence: US)
  Receive Date: 20140318
  Receipt Date: 20140407
  Transmission Date: 20141212
  Serious: Yes (Other)
  Sender: FDA-Public Use
  Company Number: US-ASTELLAS-2014US002495

PATIENT
  Age: 60 Year
  Sex: Male
  Weight: 81 kg

DRUGS (1)
  1. PROGRAF [Suspect]
     Indication: LIVER TRANSPLANT
     Dosage: 1.5 MG, BID
     Route: 048
     Dates: start: 2002

REACTIONS (1)
  - Adenocarcinoma of colon [Recovered/Resolved]
